FAERS Safety Report 17735450 (Version 1)
Quarter: 2020Q2

REPORT INFORMATION
  Report Type: Spontaneous
  Country: DK (occurrence: DK)
  Receive Date: 20200501
  Receipt Date: 20200501
  Transmission Date: 20200714
  Serious: Yes (Hospitalization)
  Sender: FDA-Public Use
  Company Number: NVSC2020DK116281

PATIENT
  Age: 23 Year
  Sex: Female

DRUGS (24)
  1. SODIUM CITRATE. [Concomitant]
     Active Substance: SODIUM CITRATE
     Indication: CENTRAL VENOUS CATHETERISATION
     Dosage: 1 DF, QD (STYRKE: 4%)
     Route: 048
     Dates: start: 20191025
  2. LEVOCETIRIZINE [Concomitant]
     Active Substance: LEVOCETIRIZINE
     Indication: URTICARIA
     Dosage: 15 MG, QD (STYRKE: 5 MG)
     Route: 048
     Dates: start: 20110704
  3. FUROSEMIDE. [Concomitant]
     Active Substance: FUROSEMIDE
     Indication: DIURETIC THERAPY
     Dosage: STYRKE: 40 MGDOSIS:  40 MG 1- 2 GANGE DAGLIGT.
     Route: 048
     Dates: start: 20180511
  4. MOMETASONE [Concomitant]
     Active Substance: MOMETASONE
     Indication: RHINORRHOEA
     Dosage: 50 UG, QD (STYRKE: 50 MIKROGRAM/DOSIS)
     Route: 045
     Dates: start: 20191024
  5. AZITHROMYCIN ANHYDROUS. [Concomitant]
     Active Substance: AZITHROMYCIN ANHYDROUS
     Indication: INFECTION
     Dosage: 750 MG, QW (STYRKE: 500 MG)
     Route: 048
     Dates: start: 20190909
  6. GLUCAGEN [Concomitant]
     Active Substance: GLUCAGON HYDROCHLORIDE
     Indication: SHOCK HYPOGLYCAEMIC
     Dosage: 1 MG (STYRKE: 1 MG)
     Route: 058
     Dates: start: 20130812
  7. METOCLOPRAMIDE. [Concomitant]
     Active Substance: METOCLOPRAMIDE
     Indication: NAUSEA
     Dosage: 10 MG (STYRKE: 10 MGH?JST 3 GANGE DAGLIGT)
     Route: 048
     Dates: start: 20160922
  8. CREON [Concomitant]
     Active Substance: PANCRELIPASE AMYLASE\PANCRELIPASE LIPASE\PANCRELIPASE PROTEASE
     Indication: ENZYME SUPPLEMENTATION
     Dosage: 7.5 DF, QD (STYRKE: LIPASE 10.000 EP-E)
     Route: 048
     Dates: start: 20190917
  9. PANTOPRAZOLE [Concomitant]
     Active Substance: PANTOPRAZOLE
     Indication: GASTROOESOPHAGEAL REFLUX DISEASE
     Dosage: 40 MG, QD (STYRKE: 40 MG)
     Route: 048
     Dates: start: 20170818
  10. CERTICAN [Suspect]
     Active Substance: EVEROLIMUS
     Indication: IMMUNOSUPPRESSANT DRUG THERAPY
     Dosage: STYRKE: 0,5 MGDOSIS: OPSTART 0,5MG 2 GANGE DAGL. ?GET TIL 1 MG 2 GANGE DAGL (30SEP2019)
     Route: 048
     Dates: start: 20190918, end: 20200115
  11. KLARIGEN [Concomitant]
     Indication: SINUSITIS
     Dosage: 3 DF, QD (STYRKE: 1 MG/ML)
     Route: 045
     Dates: start: 20191028, end: 20191031
  12. ONDANSETRON [Concomitant]
     Active Substance: ONDANSETRON
     Indication: NAUSEA
     Dosage: 4 MG
     Route: 048
     Dates: start: 20170530, end: 20191128
  13. SULFAMETHOXAZOL [Concomitant]
     Active Substance: SULFAMETHOXAZOLE
     Indication: PNEUMOCYSTIS JIROVECII PNEUMONIA
     Dosage: 3 DF, QW (STYRKE: 400MG/80MG)
     Route: 048
     Dates: start: 20170404
  14. OXYCODONE [Concomitant]
     Active Substance: OXYCODONE
     Indication: PAIN
     Dosage: 1 DF (STYRKE: 5 MG OG 10 MG)
     Route: 048
     Dates: start: 20180817
  15. PREDNISOLONE. [Concomitant]
     Active Substance: PREDNISOLONE
     Indication: PROPHYLAXIS AGAINST TRANSPLANT REJECTION
     Dosage: STYRKE 1 MGDOSIS: 30-35 TABLETTER DAGLIG
     Route: 048
     Dates: start: 20170906
  16. NOVORAPID [Concomitant]
     Active Substance: INSULIN ASPART
     Indication: TYPE 2 DIABETES MELLITUS
     Dosage: 2 IU (STYRKE: 100 E/ML)
     Route: 058
     Dates: start: 20170529
  17. CICLOSPORIN [Concomitant]
     Active Substance: CYCLOSPORINE
     Indication: PROPHYLAXIS AGAINST TRANSPLANT REJECTION
     Dosage: STYRKE: 25 MG OG 100 MGDOSIS VARIATION
     Route: 048
     Dates: start: 20170830
  18. LEVEMIR [Concomitant]
     Active Substance: INSULIN DETEMIR
     Indication: TYPE 2 DIABETES MELLITUS
     Dosage: 16 IU, QD STYRKE: 100 E/ML
     Route: 048
     Dates: start: 20180221
  19. IDOFORM [Concomitant]
     Indication: DIARRHOEA
     Dosage: 3 DF, QD (STYRKE: UKENDT)
     Route: 048
     Dates: start: 20191027, end: 20191220
  20. DEKASOFT [Concomitant]
     Indication: VITAMIN SUPPLEMENTATION
     Dosage: 2 DF, QD (STYRKE: UKENDT)
     Route: 048
     Dates: start: 20170309
  21. AMOXICILLIN. [Concomitant]
     Active Substance: AMOXICILLIN
     Indication: SINUSITIS
     Dosage: 1 DF, QD (STYRKE: 500 MG+ 125MG)
     Route: 048
     Dates: start: 20191024, end: 20191104
  22. MACROGOL [Concomitant]
     Active Substance: POLYETHYLENE GLYCOLS
     Indication: CONSTIPATION
     Dosage: STYRKE: UKENDTDOSIS: 2 BREVE EFTER BEHOV H?JST 2 GANGE DAGLIGT
     Route: 048
     Dates: start: 20170815
  23. PARACETAMOL [Concomitant]
     Active Substance: ACETAMINOPHEN
     Indication: PAIN
     Dosage: STYRKE: 500 MGDOSIS: 1-2 TABL H?JST 4 GANGE DAGLIGT.
     Route: 048
     Dates: start: 20170511
  24. AMLODIPINE [Concomitant]
     Active Substance: AMLODIPINE BESYLATE
     Indication: HYPERTENSION
     Dosage: 5 MG, QD (STYRKE: 5 MG)
     Route: 048
     Dates: start: 20190521

REACTIONS (3)
  - Pulmonary function test decreased [Not Recovered/Not Resolved]
  - Pneumonitis [Unknown]
  - Organising pneumonia [Not Recovered/Not Resolved]

NARRATIVE: CASE EVENT DATE: 2019
